FAERS Safety Report 9385772 (Version 1)
Quarter: 2013Q3

REPORT INFORMATION
  Report Type: Spontaneous
  Country: US (occurrence: US)
  Receive Date: 20130705
  Receipt Date: 20130705
  Transmission Date: 20140515
  Serious: Yes (Hospitalization)
  Sender: FDA-Public Use
  Company Number: US-BAYER-2013-079866

PATIENT
  Age: 38 Year
  Sex: Female
  Weight: 95.24 kg

DRUGS (3)
  1. YASMIN [Suspect]
  2. VIOXX [Concomitant]
  3. CLARINEX [DESLORATADINE] [Concomitant]

REACTIONS (2)
  - Thrombophlebitis superficial [Recovered/Resolved]
  - Deep vein thrombosis [Recovering/Resolving]
